FAERS Safety Report 24310467 (Version 3)
Quarter: 2024Q4

REPORT INFORMATION
  Report Type: Spontaneous
  Country: US (occurrence: US)
  Receive Date: 20240912
  Receipt Date: 20241014
  Transmission Date: 20250115
  Serious: No
  Sender: MERCK
  Company Number: US-009507513-2408USA008447

PATIENT
  Sex: Male
  Weight: 109.3 kg

DRUGS (2)
  1. KEYTRUDA [Suspect]
     Active Substance: PEMBROLIZUMAB
     Indication: Renal cell carcinoma
     Dosage: 200 MILLIGRAM, Q3W
     Route: 042
     Dates: start: 20191001, end: 20211108
  2. AXITINIB [Suspect]
     Active Substance: AXITINIB
     Indication: Renal cell carcinoma
     Dosage: 5 MILLIGRAM, BID
     Route: 048
     Dates: start: 20191001, end: 20211108

REACTIONS (1)
  - Palmar-plantar erythrodysaesthesia syndrome [Recovered/Resolved]

NARRATIVE: CASE EVENT DATE: 20211101
